FAERS Safety Report 11317072 (Version 1)
Quarter: 2015Q3

REPORT INFORMATION
  Report Type: Spontaneous
  Country: IE (occurrence: IE)
  Receive Date: 20150728
  Receipt Date: 20150728
  Transmission Date: 20151125
  Serious: Yes (Other)
  Sender: FDA-Public Use
  Company Number: IE-TEVA-581191ISR

PATIENT
  Sex: Male

DRUGS (2)
  1. ESOMEPRAZOLE TEVA PHARMA [Suspect]
     Active Substance: ESOMEPRAZOLE
     Dosage: 1 DOSAGE FORMS DAILY; TABLETS GASTRO-RESISTANT
     Route: 048
     Dates: start: 20150421, end: 201505
  2. ESOMEPRAZOLE TEVA PHARMA [Suspect]
     Active Substance: ESOMEPRAZOLE
     Indication: GASTROOESOPHAGEAL REFLUX DISEASE
     Dosage: 40 MILLIGRAM DAILY; TABLETS GASTRO-RESISTANT
     Route: 048
     Dates: start: 20150702, end: 20150706

REACTIONS (4)
  - Nausea [Recovered/Resolved]
  - Depressed mood [Recovered/Resolved]
  - Anxiety [Recovered/Resolved]
  - Emotional disorder [Recovered/Resolved]

NARRATIVE: CASE EVENT DATE: 20150702
